FAERS Safety Report 5863957-8 (Version None)
Quarter: 2008Q3

REPORT INFORMATION
  Report Type: 
  Country: None (occurrence: None)
  Receive Date: 20080829
  Receipt Date: 20080825
  Transmission Date: 20090109
  Serious: Yes (Other)
  Sender: FDA-Public Use
  Company Number: BE-JNJFOC-20080805555

PATIENT
  Age: 69 Year
  Sex: Female

DRUGS (1)
  1. REMICADE [Suspect]
     Indication: RHEUMATOID ARTHRITIS
     Dosage: PER PROTOCOL
     Route: 042

REACTIONS (2)
  - PERIVASCULAR DERMATITIS [None]
  - SYSTEMIC LUPUS ERYTHEMATOSUS [None]
